FAERS Safety Report 7284455-3 (Version None)
Quarter: 2011Q1

REPORT INFORMATION
  Report Type: 
  Country: None (occurrence: None)
  Receive Date: 20110209
  Receipt Date: 20110208
  Transmission Date: 20110831
  Serious: Yes (Other)
  Sender: FDA-Public Use
  Company Number: US-PFIZER INC-2010147316

PATIENT
  Sex: Male
  Weight: 90 kg

DRUGS (18)
  1. PROPRANOLOL [Concomitant]
     Indication: OEDEMA PERIPHERAL
     Dosage: 40 MG, 1X/DAY
     Route: 048
     Dates: start: 20100101
  2. PROPRANOLOL [Concomitant]
     Indication: PROPHYLAXIS
  3. BIOTIN [Concomitant]
     Indication: VITAMIN SUPPLEMENTATION
     Dosage: 45 UG, 1X/DAY
     Route: 048
     Dates: start: 20100101
  4. VITAMIN B-12 [Concomitant]
     Indication: VITAMIN SUPPLEMENTATION
     Dosage: 30 UG, 1X/DAY
     Route: 048
     Dates: start: 20100101
  5. SYNTHROID [Concomitant]
     Indication: THYROID DISORDER
     Dosage: 50 UG, 1X/DAY
     Route: 048
     Dates: start: 20100101
  6. CHANTIX [Suspect]
     Indication: SMOKING CESSATION THERAPY
     Dosage: 1 MG, 2X/DAY
     Route: 048
     Dates: start: 20101110
  7. CHANTIX [Suspect]
     Indication: DYSPNOEA
     Dosage: 0.5 MG, 1X/DAY
     Route: 048
     Dates: end: 20110101
  8. THIAMINE [Concomitant]
     Indication: VITAMIN SUPPLEMENTATION
     Dosage: 100 MG, 1X/DAY
     Route: 048
     Dates: start: 20100101
  9. VITAMIN B6 [Concomitant]
     Indication: VITAMIN SUPPLEMENTATION
     Dosage: 5 MG, 1X/DAY
     Route: 048
     Dates: start: 20100101
  10. FOLIC ACID [Concomitant]
     Indication: VITAMIN SUPPLEMENTATION
     Dosage: 400 MG, 1X/DAY
     Route: 048
     Dates: start: 20100101
  11. SPIRONOLACTONE [Concomitant]
     Dosage: 100 MG, 1X/DAY
     Route: 048
  12. PANTOTHENIC ACID [Concomitant]
     Indication: VITAMIN SUPPLEMENTATION
     Dosage: 5.5 MG, 1X/DAY
     Route: 048
     Dates: start: 20100101
  13. NIACIN [Concomitant]
     Indication: SUPPLEMENTATION THERAPY
     Dosage: 25 MG, 1X/DAY
     Route: 048
     Dates: start: 20100101
  14. FUROSEMIDE [Concomitant]
     Dosage: 20 MG, 1X/DAY
     Route: 048
  15. RIBOFLAVIN [Concomitant]
     Indication: VITAMIN SUPPLEMENTATION
     Dosage: 20 MG, 1X/DAY
     Route: 048
     Dates: start: 20100101
  16. ASCORBIC ACID [Concomitant]
     Indication: VITAMIN SUPPLEMENTATION
     Dosage: 180 MG, 1X/DAY
     Route: 048
     Dates: start: 20100101
  17. VITAMIN D [Concomitant]
     Indication: VITAMIN SUPPLEMENTATION
     Dosage: 1000 IU, 1X/DAY
     Route: 048
     Dates: start: 20100101
  18. IRON [Concomitant]
     Indication: MINERAL SUPPLEMENTATION
     Dosage: 55 MG, 1X/DAY
     Route: 048
     Dates: start: 20100101

REACTIONS (5)
  - MENTAL IMPAIRMENT [None]
  - SUICIDAL IDEATION [None]
  - CONFUSIONAL STATE [None]
  - BLISTER [None]
  - HOSTILITY [None]
